FAERS Safety Report 9115037 (Version 1)
Quarter: 2013Q1

REPORT INFORMATION
  Report Type: Report from Study
  Country: NL (occurrence: NL)
  Receive Date: 20130208
  Receipt Date: 20130208
  Transmission Date: 20140127
  Serious: Yes (Hospitalization)
  Sender: FDA-Public Use
  Company Number: NL-ROCHE-1185716

PATIENT
  Age: 77 Year
  Sex: Male

DRUGS (6)
  1. BEVACIZUMAB [Suspect]
     Indication: COLON CANCER
     Dosage: DATE OF LAST CYCLE ON 24/OCT/2012
     Route: 065
     Dates: start: 20120104
  2. CAPECITABINE [Suspect]
     Indication: COLON CANCER
     Dosage: DATE OF LAST CYCLE ON 24/OCT/2012
     Route: 065
     Dates: start: 20120104
  3. NEXIUM [Concomitant]
     Route: 065
  4. ATENOLOL/CHLORTHALIDONE [Concomitant]
     Dosage: 50/12.5 MG
     Route: 065
  5. AVODART [Concomitant]
     Route: 065
  6. SINTROM [Concomitant]

REACTIONS (1)
  - Vestibular neuronitis [Recovered/Resolved]
